FAERS Safety Report 10270729 (Version 6)
Quarter: 2014Q3

REPORT INFORMATION
  Report Type: Spontaneous
  Country: JP (occurrence: None)
  Receive Date: 20140626
  Receipt Date: 20140902
  Transmission Date: 20150326
  Serious: Yes (Death, Hospitalization, Other)
  Sender: FDA-Public Use
  Company Number: ADR-2014-01103

PATIENT
  Age: 58 Year
  Sex: Female
  Weight: 39 kg

DRUGS (1)
  1. GABALON INTRATHECAL (0.2%) [Suspect]
     Active Substance: BACLOFEN
     Indication: SUBARACHNOID HAEMORRHAGE
     Dosage: 290 MCG/DAY
     Dates: start: 20130520, end: 20140612

REACTIONS (1)
  - Pneumonia [None]

NARRATIVE: CASE EVENT DATE: 20140608
